FAERS Safety Report 18338449 (Version 7)
Quarter: 2021Q3

REPORT INFORMATION
  Report Type: Report from Study
  Country: HU (occurrence: HU)
  Receive Date: 20201002
  Receipt Date: 20210727
  Transmission Date: 20211014
  Serious: Yes (Hospitalization)
  Sender: FDA-Public Use
  Company Number: HU-EISAI MEDICAL RESEARCH-EC-2020-081440

PATIENT
  Age: 52 Year
  Sex: Female
  Weight: 85 kg

DRUGS (15)
  1. METFOGAMMA [Concomitant]
     Active Substance: METFORMIN HYDROCHLORIDE
     Dates: start: 201501
  2. PEMBROLIZUMAB. [Suspect]
     Active Substance: PEMBROLIZUMAB
     Route: 041
     Dates: start: 20200827, end: 20200827
  3. PEMBROLIZUMAB. [Suspect]
     Active Substance: PEMBROLIZUMAB
     Indication: NON-SMALL CELL LUNG CANCER METASTATIC
     Route: 041
     Dates: start: 20190806, end: 20200806
  4. NITRODERM [Concomitant]
     Active Substance: NITROGLYCERIN
     Dates: start: 201501
  5. CO PERINEVA [Concomitant]
     Active Substance: INDAPAMIDE\PERINDOPRIL ERBUMINE
     Dates: start: 201901
  6. HUMULIN M3 [Concomitant]
     Active Substance: INSULIN HUMAN
     Dates: start: 20190724
  7. CETIRIZIN [Concomitant]
     Active Substance: CETIRIZINE HYDROCHLORIDE
     Dates: start: 20200527
  8. PEMBROLIZUMAB. [Suspect]
     Active Substance: PEMBROLIZUMAB
     Route: 041
     Dates: start: 20200922
  9. ROSUTEC [Concomitant]
     Dates: start: 201707
  10. LENVATINIB [Suspect]
     Active Substance: LENVATINIB
     Indication: NON-SMALL CELL LUNG CANCER METASTATIC
     Route: 048
     Dates: start: 20190806
  11. AMLODIPINE [Concomitant]
     Active Substance: AMLODIPINE BESYLATE
     Dates: start: 201801
  12. BISOPROLOL [Concomitant]
     Active Substance: BISOPROLOL
     Dates: start: 201501
  13. ADEXOR [Concomitant]
     Dates: start: 201701
  14. ACETYLSALICYLIC ACID [Concomitant]
     Active Substance: ASPIRIN
     Dates: start: 201501
  15. THEOSPIREX [Concomitant]
     Active Substance: THEOPHYLLINE ANHYDROUS
     Dates: start: 201201

REACTIONS (1)
  - Enterocolitis [Recovered/Resolved]

NARRATIVE: CASE EVENT DATE: 20200910
